FAERS Safety Report 13082126 (Version 1)
Quarter: 2017Q1

REPORT INFORMATION
  Report Type: Spontaneous
  Country: US (occurrence: US)
  Receive Date: 20170103
  Receipt Date: 20170103
  Transmission Date: 20170428
  Serious: No
  Sender: FDA-Public Use
  Company Number: US-PFIZER INC-2016192281

PATIENT
  Age: 93 Year
  Sex: Female
  Weight: 41 kg

DRUGS (15)
  1. ALPRAZOLAM. [Concomitant]
     Active Substance: ALPRAZOLAM
     Dosage: 0.5 MG, DAILY
     Route: 048
  2. ZOLPIDEM [Concomitant]
     Active Substance: ZOLPIDEM\ZOLPIDEM TARTRATE
     Dosage: 10 MG, 1X/DAY (AT BEDTIME)
     Route: 048
  3. PATADAY [Concomitant]
     Active Substance: OLOPATADINE HYDROCHLORIDE
     Dosage: 1 GTT, DAILY (1 DROP BY OPHTHALMIC ROUTE EVERY DAY INTO AFFECTED EYE(S))
     Route: 047
  4. TIKOSYN [Suspect]
     Active Substance: DOFETILIDE
     Indication: CARDIAC DISORDER
     Dosage: 375 UG, 2X/DAY
     Route: 048
     Dates: start: 20160418
  5. WARFARIN [Concomitant]
     Active Substance: WARFARIN
     Dosage: 6 MG, 1X/DAY
     Route: 048
  6. TIKOSYN [Suspect]
     Active Substance: DOFETILIDE
     Indication: CARDIAC PACEMAKER REPLACEMENT
  7. MIRTAZAPINE. [Concomitant]
     Active Substance: MIRTAZAPINE
     Dosage: 30 MG, 1X/DAY (BEFORE BEDTIME)
     Route: 048
  8. DIGOXIN. [Concomitant]
     Active Substance: DIGOXIN
     Dosage: 125 UG, DAILY
     Route: 048
  9. ZYRTEC [Concomitant]
     Active Substance: CETIRIZINE HYDROCHLORIDE
     Dosage: 10 MG, DAILY
     Route: 048
  10. LATANOPROST. [Concomitant]
     Active Substance: LATANOPROST
     Dosage: 1 GTT, 1X/DAY (1 DROP BY OPHTHALMIC ROUTE EVERY DAY INTO AFFECTED EYE(S) IN THE EVENING)
     Route: 047
  11. TIKOSYN [Suspect]
     Active Substance: DOFETILIDE
     Indication: ATRIAL FIBRILLATION
     Dosage: 250 UG, 2X/DAY
     Route: 048
  12. LEVOTHYROXINE. [Concomitant]
     Active Substance: LEVOTHYROXINE
     Dosage: 125 UG, DAILY
     Route: 048
  13. COUMADIN [Concomitant]
     Active Substance: WARFARIN SODIUM
     Dosage: 6 MG, DAILY
     Route: 048
  14. PILOCARPINE. [Concomitant]
     Active Substance: PILOCARPINE
     Dosage: 1 GTT, EVERY 4 H
     Route: 047
  15. BENZONATATE. [Concomitant]
     Active Substance: BENZONATATE
     Dosage: 100 MG, AS NEEDED
     Route: 048

REACTIONS (8)
  - Rhonchi [Unknown]
  - Cardiac murmur [Unknown]
  - Oedema peripheral [Unknown]
  - Varicose vein [Unknown]
  - Drug dose omission [Recovered/Resolved]
  - Underweight [Unknown]
  - Skin discolouration [Unknown]
  - Breath sounds abnormal [Unknown]
